FAERS Safety Report 8282710-1 (Version None)
Quarter: 2012Q2

REPORT INFORMATION
  Report Type: 
  Country: None (occurrence: None)
  Receive Date: 20120413
  Receipt Date: 20120403
  Transmission Date: 20120825
  Serious: Yes (Hospitalization, Other)
  Sender: FDA-Public Use
  Company Number: JP-JNJFOC-20100507005

PATIENT
  Sex: Female
  Weight: 65 kg

DRUGS (13)
  1. RHEUMATREX [Concomitant]
     Indication: RHEUMATOID ARTHRITIS
     Route: 048
  2. SODIUM HYALURONATE [Concomitant]
     Indication: RHINITIS ALLERGIC
     Route: 031
  3. GOLIMUMAB [Suspect]
     Route: 058
     Dates: start: 20081222
  4. LOXONIN [Concomitant]
     Indication: RHEUMATOID ARTHRITIS
     Route: 048
  5. LANSOPRAZOLE [Concomitant]
     Route: 048
  6. PETROLATUM SALICYLATE [Concomitant]
     Route: 061
  7. GOLIMUMAB [Suspect]
     Indication: RHEUMATOID ARTHRITIS
     Route: 058
     Dates: start: 20100412
  8. KETOPROFEN [Concomitant]
     Indication: RHEUMATOID ARTHRITIS
     Route: 062
     Dates: start: 20090706
  9. CLOBETASOL PROPIONATE [Concomitant]
     Route: 061
  10. BORIC ACID [Concomitant]
     Indication: DRY EYE
     Route: 031
  11. FOLIAMIN [Concomitant]
     Indication: PROPHYLAXIS
     Route: 048
  12. MUCOSTA [Concomitant]
     Indication: PROPHYLAXIS
     Route: 048
  13. ALOSENN [Concomitant]
     Indication: CONSTIPATION
     Route: 048

REACTIONS (1)
  - BREAST CANCER [None]
